FAERS Safety Report 21836829 (Version 5)
Quarter: 2023Q2

REPORT INFORMATION
  Report Type: Report from Study
  Country: US (occurrence: US)
  Receive Date: 20230109
  Receipt Date: 20230622
  Transmission Date: 20230722
  Serious: Yes (Hospitalization, Other)
  Sender: FDA-Public Use
  Company Number: US-ARGENX-2022-ARGX-US000684

PATIENT

DRUGS (1)
  1. VYVGART [Suspect]
     Active Substance: EFGARTIGIMOD ALFA-FCAB
     Indication: Myasthenia gravis
     Dosage: 920 MG EVERY WEEK
     Dates: start: 20220429

REACTIONS (13)
  - Thymoma [Unknown]
  - Surgery [Unknown]
  - Infusion related reaction [Unknown]
  - Therapy non-responder [Unknown]
  - Tachypnoea [Recovered/Resolved]
  - Wrong dose [Unknown]
  - Asthenia [Recovering/Resolving]
  - Dyspnoea [Recovering/Resolving]
  - Muscle spasms [Recovered/Resolved]
  - Hypopnoea [Unknown]
  - Inappropriate schedule of product administration [Unknown]
  - Poor venous access [Unknown]
  - Weight increased [Unknown]

NARRATIVE: CASE EVENT DATE: 20220429
